FAERS Safety Report 6842472-9 (Version None)
Quarter: 2010Q3

REPORT INFORMATION
  Report Type: 
  Country: None (occurrence: None)
  Receive Date: 20100709
  Receipt Date: 20100625
  Transmission Date: 20110219
  Serious: Yes (Death, Hospitalization)
  Sender: FDA-Public Use
  Company Number: GER/UKI/10/0013904

PATIENT
  Sex: Male

DRUGS (1)
  1. CIPROFLOXACIN [Suspect]
     Indication: UROSEPSIS
     Dosage: 500 MG, ORAL
     Route: 048
     Dates: start: 20100219

REACTIONS (7)
  - ABDOMINAL PAIN LOWER [None]
  - HEPATIC FAILURE [None]
  - MULTI-ORGAN FAILURE [None]
  - RENAL IMPAIRMENT [None]
  - URINE ABNORMALITY [None]
  - URINE VISCOSITY INCREASED [None]
  - VOMITING [None]
